FAERS Safety Report 22028589 (Version 1)
Quarter: 2023Q1

REPORT INFORMATION
  Report Type: Report from Study
  Country: US (occurrence: US)
  Receive Date: 20230223
  Receipt Date: 20230223
  Transmission Date: 20230418
  Serious: Yes (Hospitalization)
  Sender: FDA-Public Use
  Company Number: US-SA-SAC20221208001352

PATIENT
  Age: 63 Year
  Sex: Male
  Weight: 81.6 kg

DRUGS (17)
  1. ISATUXIMAB [Suspect]
     Active Substance: ISATUXIMAB
     Indication: Plasma cell myeloma
     Dosage: 860 MG, INTENDED DOSE (MG/KG): 10
     Route: 042
     Dates: start: 20220701, end: 20220701
  2. ISATUXIMAB [Suspect]
     Active Substance: ISATUXIMAB
     Dosage: 840 MG, INTENDED DOSE (MG/KG): 10, INFUSION RATE (ML/H): 200
     Route: 042
     Dates: start: 20221129, end: 20221129
  3. LENALIDOMIDE [Suspect]
     Active Substance: LENALIDOMIDE
     Indication: Plasma cell myeloma
     Dosage: 25 MG, QD, ACTUAL TOTAL DOSE (MG): 25
     Route: 048
     Dates: start: 20220701, end: 20220721
  4. LENALIDOMIDE [Suspect]
     Active Substance: LENALIDOMIDE
     Dosage: 25 MG, QD, ACTUAL TOTAL DOSE (MG): 25
     Route: 048
     Dates: start: 20221129, end: 20221205
  5. DEXAMETHASONE [Suspect]
     Active Substance: DEXAMETHASONE
     Indication: Plasma cell myeloma
     Dosage: 40 MG, ACTUAL TOTAL DAILY DOSE (MG): 40
     Route: 042
     Dates: start: 20220701, end: 20220701
  6. DEXAMETHASONE [Suspect]
     Active Substance: DEXAMETHASONE
     Dosage: 20 MG,  ACTUAL TOTAL DAILY DOSE (MG): 20
     Route: 048
     Dates: start: 20221129
  7. HYDRODIURIL [Concomitant]
     Active Substance: HYDROCHLOROTHIAZIDE
     Indication: Prophylaxis
     Dosage: UNK
     Route: 048
     Dates: start: 20211206
  8. TENORMIN [Concomitant]
     Active Substance: ATENOLOL
     Indication: Prophylaxis
     Dosage: UNK
     Route: 048
     Dates: start: 20211206
  9. TYLENOL [Concomitant]
     Active Substance: ACETAMINOPHEN
     Indication: Prophylaxis
     Dosage: UNK
     Route: 048
     Dates: start: 20220701
  10. TYLENOL [Concomitant]
     Active Substance: ACETAMINOPHEN
     Dosage: UNK
     Route: 042
     Dates: start: 20221129, end: 20221129
  11. SINGULAIR [Concomitant]
     Active Substance: MONTELUKAST SODIUM
     Indication: Prophylaxis
     Dosage: UNK
     Route: 048
     Dates: start: 20220701
  12. SINGULAIR [Concomitant]
     Active Substance: MONTELUKAST SODIUM
     Dosage: UNK
     Route: 042
     Dates: start: 20221129, end: 20221129
  13. DIPHENHYDRAMINE [Concomitant]
     Active Substance: DIPHENHYDRAMINE
     Indication: Prophylaxis
     Dosage: UNK
     Route: 042
     Dates: start: 20220701
  14. DIPHENHYDRAMINE [Concomitant]
     Active Substance: DIPHENHYDRAMINE
     Dosage: UNK
     Route: 042
     Dates: start: 20221129, end: 20221129
  15. ELIQUIS [Concomitant]
     Active Substance: APIXABAN
     Indication: Prophylaxis
     Dosage: UNK
     Route: 048
     Dates: start: 20220701
  16. NORVASC [Concomitant]
     Active Substance: AMLODIPINE BESYLATE
     Indication: Prophylaxis
     Dosage: UNK
     Route: 048
     Dates: start: 20220801
  17. COZAAR [Concomitant]
     Active Substance: LOSARTAN POTASSIUM
     Indication: Prophylaxis
     Dosage: UNK
     Route: 048
     Dates: start: 20220801

REACTIONS (1)
  - Sialoadenitis [Recovered/Resolved]

NARRATIVE: CASE EVENT DATE: 20221205
